FAERS Safety Report 9530427 (Version 2)
Quarter: 2013Q4

REPORT INFORMATION
  Report Type: Spontaneous
  Country: US (occurrence: US)
  Receive Date: 20130918
  Receipt Date: 20131129
  Transmission Date: 20140711
  Serious: No
  Sender: FDA-Public Use
  Company Number: US-B.I. PHARMACEUTICALS,INC./RIDGEFIELD-2013-BI-28085BP

PATIENT
  Age: 65 Year
  Sex: Female
  Weight: 67 kg

DRUGS (3)
  1. ZANTAC (RANITIDINE HYDROCHLORIDE) [Suspect]
     Indication: GASTROOESOPHAGEAL REFLUX DISEASE
     Dosage: 300 MG
     Route: 048
     Dates: start: 201307, end: 201307
  2. MULTIVITAMIN [Concomitant]
     Route: 048
  3. CALCIUM [Concomitant]
     Route: 048

REACTIONS (2)
  - Chest discomfort [Recovered/Resolved]
  - Off label use [Not Recovered/Not Resolved]
